FAERS Safety Report 19584220 (Version 3)
Quarter: 2021Q3

REPORT INFORMATION
  Report Type: Report from Study
  Country: US (occurrence: US)
  Receive Date: 20210720
  Receipt Date: 20210909
  Transmission Date: 20211014
  Serious: Yes (Hospitalization)
  Sender: FDA-Public Use
  Company Number: US-PFIZER INC-2021867274

PATIENT
  Age: 67 Year
  Sex: Female
  Weight: 43.4 kg

DRUGS (21)
  1. ROPINIROLE. [Concomitant]
     Active Substance: ROPINIROLE
     Dosage: 1 MG, 1X/DAY (QD)
     Route: 048
     Dates: start: 20180101
  2. FENOFIBRATE. [Concomitant]
     Active Substance: FENOFIBRATE
     Dosage: 145 MG, 1X/DAY (QD)
     Route: 048
     Dates: start: 20160705
  3. HYDROCODONE/ACETAMINOPHEN [Concomitant]
     Active Substance: ACETAMINOPHEN\HYDROCODONE
     Dosage: [HYDROCODONE BITARTRATE 10 MG]/ [PARACETAMOL 325 MG], 1 TABLET, AS NEEDED (PRN)
     Route: 048
     Dates: start: 20200916
  4. ZITHROMAX [Concomitant]
     Active Substance: AZITHROMYCIN DIHYDRATE
     Dosage: 250 MG, AS NEEDED (PRN)
     Route: 048
     Dates: start: 20210119
  5. BINIMETINIB [Suspect]
     Active Substance: BINIMETINIB
     Indication: NON-SMALL CELL LUNG CANCER
     Dosage: 45 MG, 2X/DAY (BID)
     Route: 048
     Dates: start: 20200828
  6. ALENDRONATE [Concomitant]
     Active Substance: ALENDRONATE SODIUM
     Dosage: 70 MG, 1 TIME PER WEEK (QS)
     Route: 048
     Dates: start: 20190101
  7. FLUTICASONE PROPIONATE. [Concomitant]
     Active Substance: FLUTICASONE PROPIONATE
     Dosage: 2 SPRAYS, AS NEEDED (PRN)
     Route: 045
     Dates: start: 20100101
  8. CLARITIN?D NOS [Concomitant]
     Active Substance: LORATADINE\PSEUDOEPHEDRINE SULFATE
     Dosage: [LORATADINE 10 MG]/ [PSEUDOEPHEDRINE SULFATE 240 MG], 1 TABLET, AS NEEDED (PRN)
     Route: 048
     Dates: start: 20100101
  9. DULOXETINE. [Concomitant]
     Active Substance: DULOXETINE
     Dosage: 90 MG (30 MG + 60 MG), 1X/DAY (QD)
     Route: 048
     Dates: start: 19890101
  10. FENTANYL. [Concomitant]
     Active Substance: FENTANYL
     Dosage: 37.5 UG, EVERY 72 HOURS
     Route: 062
     Dates: start: 20200911
  11. CHANTIX [Concomitant]
     Active Substance: VARENICLINE TARTRATE
     Indication: SMOKING CESSATION THERAPY
     Dosage: 0.5 MG, 1X/DAY (QD)
     Route: 048
     Dates: start: 20201120
  12. BUSPIRONE [Concomitant]
     Active Substance: BUSPIRONE HYDROCHLORIDE
     Dosage: 15 MG, 2X/DAY (BID)
     Route: 048
     Dates: start: 20180601
  13. ATORVASTATIN [Concomitant]
     Active Substance: ATORVASTATIN
     Dosage: 20 MG, 1X/DAY (QD)
     Route: 048
     Dates: start: 19850101
  14. FLEXERIL [Concomitant]
     Active Substance: CYCLOBENZAPRINE HYDROCHLORIDE
     Dosage: 5 MG, AS NEEDED (PRN)
     Route: 048
     Dates: start: 20210111
  15. ENCORAFENIB [Suspect]
     Active Substance: ENCORAFENIB
     Indication: NON-SMALL CELL LUNG CANCER
     Dosage: 450 MG, DAILY
     Route: 048
     Dates: start: 20200828
  16. ASPIRIN [ACETYLSALICYLIC ACID] [Concomitant]
     Active Substance: ASPIRIN
     Indication: PROPHYLAXIS
     Dosage: 81 MG, 1X/DAY (QD)
     Route: 048
     Dates: start: 19850101
  17. ZOFRAN [Concomitant]
     Active Substance: ONDANSETRON HYDROCHLORIDE
     Dosage: 8 MG, AS NEEDED (PRN)
     Route: 048
     Dates: start: 20200831
  18. HYDROCODONE/ACETAMINOPHEN [Concomitant]
     Active Substance: ACETAMINOPHEN\HYDROCODONE
     Dosage: [HYDROCODONE BITARTRATE 7.5 MG]/[PARACETAMOL 3.25 MG], 1 TABLET, AS NEEDED (PRN)
     Route: 048
     Dates: start: 20200901
  19. PANTOPRAZOLE [Concomitant]
     Active Substance: PANTOPRAZOLE
     Dosage: 40 MG, 1X/DAY (QD)
     Route: 048
     Dates: start: 20180101
  20. SYMBICORT [Concomitant]
     Active Substance: BUDESONIDE\FORMOTEROL FUMARATE DIHYDRATE
     Dosage: [BUDESONIDE 160 UG]/ [FORMOTEROL FUMARATE 4.5 UG], 2 PUFFS, 2X/DAY (BID)
     Route: 055
     Dates: start: 20160705
  21. COMPAZINE [Concomitant]
     Active Substance: PROCHLORPERAZINE MALEATE
     Dosage: 10 MG, AS NEEDED (PRN)
     Route: 048
     Dates: start: 20200901

REACTIONS (1)
  - Hypertension [Recovered/Resolved]

NARRATIVE: CASE EVENT DATE: 20210702
